FAERS Safety Report 8352591-6 (Version None)
Quarter: 2012Q2

REPORT INFORMATION
  Report Type: 
  Country: None (occurrence: None)
  Receive Date: 20120511
  Receipt Date: 20120315
  Transmission Date: 20120825
  Serious: No
  Sender: FDA-Public Use
  Company Number: US-COVIDIEN/TYCO HEALTHCARE/MALLINCKRODT-T201201108

PATIENT
  Sex: Male
  Weight: 80.272 kg

DRUGS (8)
  1. FENTANYL-100 [Suspect]
     Indication: FIBROMYALGIA
  2. LEXAPRO [Concomitant]
     Indication: FIBROMYALGIA
     Dosage: UNK
  3. FENTANYL-100 [Suspect]
     Indication: ARTHRALGIA
  4. LYRICA [Concomitant]
     Indication: FIBROMYALGIA
     Dosage: UNK
  5. WELLBUTRIN [Concomitant]
     Indication: FIBROMYALGIA
     Dosage: UNK
  6. FOSAMAX [Concomitant]
     Indication: OSTEOPENIA
     Dosage: UNK
  7. CLONAZEPAM [Concomitant]
     Indication: FIBROMYALGIA
     Dosage: UNK
  8. FENTANYL-100 [Suspect]
     Indication: BACK PAIN
     Dosage: ONE 50 MCG/HR, Q 72 HRS
     Dates: start: 20120312

REACTIONS (2)
  - DRUG EFFECT DECREASED [None]
  - INAPPROPRIATE SCHEDULE OF DRUG ADMINISTRATION [None]
